FAERS Safety Report 8146305 (Version 6)
Quarter: 2013Q3

REPORT INFORMATION
  Report Type: Spontaneous
  Country: US (occurrence: US)
  Receive Date: 20110921
  Receipt Date: 20130904
  Transmission Date: 20140515
  Serious: Yes (Hospitalization)
  Sender: FDA-Public Use
  Company Number: US-GLAXOSMITHKLINE-A0915658A

PATIENT
  Age: 55 Year
  Sex: Female
  Weight: 110 kg

DRUGS (4)
  1. AVANDIA [Suspect]
     Indication: DIABETES MELLITUS
     Dosage: 4MG PER DAY
     Route: 048
     Dates: start: 200503, end: 201003
  2. INSULIN [Concomitant]
  3. NEURONTIN [Concomitant]
  4. AMBIEN [Concomitant]

REACTIONS (9)
  - Myocardial infarction [Not Recovered/Not Resolved]
  - Cerebrovascular accident [Unknown]
  - Cardiomyopathy [Unknown]
  - Hypertension [Unknown]
  - Coronary artery disease [Unknown]
  - Dyslipidaemia [Unknown]
  - Hypoaesthesia [Unknown]
  - Fatigue [Unknown]
  - Thalamus haemorrhage [Unknown]
